FAERS Safety Report 6497027-5 (Version None)
Quarter: 2009Q4

REPORT INFORMATION
  Report Type: 
  Country: None (occurrence: None)
  Receive Date: 20091215
  Receipt Date: 20090115
  Transmission Date: 20100525
  Serious: No
  Sender: FDA-Public Use
  Company Number: A0763779A

PATIENT
  Age: 67 Year
  Sex: Male

DRUGS (6)
  1. AVODART [Suspect]
     Indication: PROSTATE CANCER
     Dosage: 1CAP TWO TIMES PER WEEK
     Route: 048
     Dates: start: 20080701, end: 20081101
  2. NORVASC [Concomitant]
  3. CARDURA [Concomitant]
  4. POTASSIUM [Concomitant]
  5. MAXZIDE [Concomitant]
  6. CALCIUM CHANNEL BLOCKER [Concomitant]

REACTIONS (3)
  - BREAST PAIN [None]
  - BREAST TENDERNESS [None]
  - LIBIDO DECREASED [None]
